FAERS Safety Report 9620405 (Version 1)
Quarter: 2013Q4

REPORT INFORMATION
  Report Type: Spontaneous
  Country: US (occurrence: US)
  Receive Date: 20131015
  Receipt Date: 20131015
  Transmission Date: 20140711
  Serious: No
  Sender: FDA-Public Use
  Company Number: -SAAVPROD-BMS17087974

PATIENT
  Age: 43 Year
  Sex: Female
  Weight: 115.64 kg

DRUGS (3)
  1. AVALIDE [Suspect]
     Dosage: 1980:300/12.5,1982:GENERIC,
     Dates: start: 1982
  2. AVAPRO [Suspect]
  3. HYDROCHLOROTHIAZIDE [Concomitant]

REACTIONS (1)
  - Blood pressure fluctuation [Unknown]
